FAERS Safety Report 14264061 (Version 4)
Quarter: 2018Q2

REPORT INFORMATION
  Report Type: Spontaneous
  Country: RU (occurrence: RU)
  Receive Date: 20171208
  Receipt Date: 20180524
  Transmission Date: 20180711
  Serious: Yes (Hospitalization, Other)
  Sender: FDA-Public Use
  Company Number: RU-ASTRAZENECA-2017SF24433

PATIENT
  Age: 72 Year
  Sex: Female
  Weight: 77 kg

DRUGS (12)
  1. BRILINTA [Suspect]
     Active Substance: TICAGRELOR
     Indication: ANGINA UNSTABLE
     Route: 048
     Dates: start: 20170205
  2. ROSUVASTATIN. [Suspect]
     Active Substance: ROSUVASTATIN
     Indication: ARTERIOSCLEROSIS
     Dosage: 10.0MG UNKNOWN
     Route: 048
  3. BRILINTA [Suspect]
     Active Substance: TICAGRELOR
     Indication: ANGINA UNSTABLE
     Route: 048
  4. THE COMPLEX OF B GROUP VITAMINS [Concomitant]
  5. ROSUVASTATIN. [Suspect]
     Active Substance: ROSUVASTATIN
     Indication: ARTERIOSCLEROSIS
     Dosage: 20.0MG UNKNOWN
     Route: 048
     Dates: start: 20170208
  6. CARDIOMAGNYL [Concomitant]
     Active Substance: ASPIRIN\MAGNESIUM HYDROXIDE
  7. BRILINTA [Suspect]
     Active Substance: TICAGRELOR
     Indication: STENT PLACEMENT
     Route: 048
     Dates: start: 20170205
  8. BRILINTA [Suspect]
     Active Substance: TICAGRELOR
     Indication: STENT PLACEMENT
     Route: 048
  9. MAGNESIUM PLUS B6 [Concomitant]
  10. CONCOR [Concomitant]
     Active Substance: BISOPROLOL FUMARATE
  11. VALSARTAN. [Concomitant]
     Active Substance: VALSARTAN
  12. HYDROCHLOROTHIAZIDE. [Concomitant]
     Active Substance: HYDROCHLOROTHIAZIDE

REACTIONS (9)
  - Intentional product misuse [Recovered/Resolved]
  - Oedema peripheral [Recovered/Resolved]
  - Contusion [Recovered/Resolved]
  - Blood pressure fluctuation [Recovered/Resolved]
  - Blood cholesterol decreased [Recovered/Resolved]
  - Arrhythmia [Recovered/Resolved]
  - Coronary artery stenosis [Unknown]
  - Off label use [Not Recovered/Not Resolved]
  - Product use issue [Not Recovered/Not Resolved]

NARRATIVE: CASE EVENT DATE: 2017
